FAERS Safety Report 22085652 (Version 1)
Quarter: 2023Q1

REPORT INFORMATION
  Report Type: Spontaneous
  Country: US (occurrence: US)
  Receive Date: 20230310
  Receipt Date: 20230310
  Transmission Date: 20230418
  Serious: No
  Sender: FDA-Public Use
  Company Number: US-SANOFI-01521718

PATIENT
  Age: 43 Year
  Sex: Male

DRUGS (1)
  1. DUPIXENT [Suspect]
     Active Substance: DUPILUMAB
     Indication: Eosinophilic oesophagitis
     Dosage: 300 MG, QW
     Route: 058
     Dates: start: 20230307

REACTIONS (6)
  - Dizziness [Unknown]
  - Flushing [Unknown]
  - Feeling hot [Unknown]
  - Tremor [Unknown]
  - Injection site haemorrhage [Unknown]
  - Injection site swelling [Unknown]

NARRATIVE: CASE EVENT DATE: 20230307
